FAERS Safety Report 19381542 (Version 1)
Quarter: 2021Q2

REPORT INFORMATION
  Report Type: Spontaneous
  Country: IN (occurrence: IN)
  Receive Date: 20210607
  Receipt Date: 20210607
  Transmission Date: 20210717
  Serious: Yes (Other)
  Sender: FDA-Public Use
  Company Number: IN-BAUSCH-BL-2021-018617

PATIENT
  Age: 38 Year
  Sex: Male

DRUGS (5)
  1. DEXAMETHASONE. [Suspect]
     Active Substance: DEXAMETHASONE
     Indication: PRODUCT USE IN UNAPPROVED INDICATION
  2. METHYLPREDNISOLONE. [Suspect]
     Active Substance: METHYLPREDNISOLONE
     Indication: COVID-19
     Dosage: IV INFUSION IN 240 ML SALINE AT 10 ML/H
     Route: 042
     Dates: start: 202009, end: 202009
  3. REMDESIVIR. [Concomitant]
     Active Substance: REMDESIVIR
     Route: 042
     Dates: start: 202009, end: 202009
  4. DEXAMETHASONE. [Suspect]
     Active Substance: DEXAMETHASONE
     Indication: COVID-19
     Route: 065
     Dates: start: 202009, end: 202009
  5. REMDESIVIR. [Concomitant]
     Active Substance: REMDESIVIR
     Indication: COVID-19
     Route: 042
     Dates: start: 202009, end: 202009

REACTIONS (2)
  - Product use in unapproved indication [Unknown]
  - Mucormycosis [Recovering/Resolving]

NARRATIVE: CASE EVENT DATE: 202009
